FAERS Safety Report 4899943-4 (Version None)
Quarter: 2006Q1

REPORT INFORMATION
  Report Type: 
  Country: None (occurrence: None)
  Receive Date: 20060131
  Receipt Date: 20060120
  Transmission Date: 20060701
  Serious: Yes (Other)
  Sender: FDA-Public Use
  Company Number: 2006011558

PATIENT
  Sex: Female

DRUGS (5)
  1. XANAX [Suspect]
     Indication: MUSCLE RELAXANT THERAPY
     Dosage: 2 MG (0.5 MG, 4 IN 1 D)/3-4 YEARS
  2. XANAX [Suspect]
     Indication: PAIN
     Dosage: 2 MG (0.5 MG, 4 IN 1 D)/3-4 YEARS
  3. BENADRYL [Suspect]
     Indication: PRURITUS
  4. ALL OTHER THERAPEUTIC PRODUCTS (ALL OTHER THERAPEUTIC PRODUCTS) [Concomitant]
  5. ULTRAM [Concomitant]

REACTIONS (25)
  - ACCIDENT [None]
  - ASTHENIA [None]
  - BODY TEMPERATURE DECREASED [None]
  - DIZZINESS [None]
  - DRUG INEFFECTIVE [None]
  - DRY MOUTH [None]
  - DRY THROAT [None]
  - DYSPEPSIA [None]
  - DYSPHAGIA [None]
  - FALL [None]
  - FATIGUE [None]
  - HEADACHE [None]
  - LETHARGY [None]
  - MEMORY IMPAIRMENT [None]
  - OSTEOPOROSIS [None]
  - PAIN [None]
  - PARKINSON'S DISEASE [None]
  - PRURITUS [None]
  - SPEECH DISORDER [None]
  - TIC [None]
  - TRANSIENT ISCHAEMIC ATTACK [None]
  - TREMOR [None]
  - VISUAL DISTURBANCE [None]
  - WALKING AID USER [None]
  - WEIGHT INCREASED [None]
